FAERS Safety Report 6439199-4 (Version None)
Quarter: 2009Q4

REPORT INFORMATION
  Report Type: 
  Country: None (occurrence: None)
  Receive Date: 20091113
  Receipt Date: 20091105
  Transmission Date: 20100525
  Serious: Yes (Other)
  Sender: FDA-Public Use
  Company Number: US-PFIZER INC-2009296188

PATIENT
  Sex: Female

DRUGS (1)
  1. LIPITOR [Suspect]

REACTIONS (4)
  - CHEST PAIN [None]
  - CRYING [None]
  - MALABSORPTION [None]
  - VENOUS INJURY [None]
